FAERS Safety Report 7646562-2 (Version None)
Quarter: 2011Q3

REPORT INFORMATION
  Report Type: 
  Country: None (occurrence: None)
  Receive Date: 20110725
  Receipt Date: 20110708
  Transmission Date: 20111222
  Serious: Yes (Hospitalization)
  Sender: FDA-Public Use
  Company Number: TCI2011A03733

PATIENT
  Age: 60 Year
  Sex: Male

DRUGS (5)
  1. JANUVIA [Concomitant]
  2. CALBLOCK (AZELNIDIPINE) [Concomitant]
  3. ACTOS [Suspect]
     Indication: HYPERINSULINAEMIA
     Dosage: 15 MG (15 MG, 1 IN 1 D), PER ORAL
     Route: 048
     Dates: start: 20061021, end: 20110312
  4. ACTOS [Suspect]
     Indication: DIABETES MELLITUS
     Dosage: 15 MG (15 MG, 1 IN 1 D), PER ORAL
     Route: 048
     Dates: start: 20061021, end: 20110312
  5. DIOVAN [Concomitant]

REACTIONS (2)
  - BLADDER CANCER [None]
  - HAEMATURIA [None]
